FAERS Safety Report 8943807 (Version 1)
Quarter: 2012Q4

REPORT INFORMATION
  Report Type: 
  Country: US (occurrence: US)
  Receive Date: 20121204
  Receipt Date: 20121204
  Transmission Date: 20130627
  Serious: No
  Sender: FDA-Public Use
  Company Number: US-009507513-1212USA000759

PATIENT
  Age: 83 Year
  Sex: Male

DRUGS (12)
  1. JANUVIA [Suspect]
     Indication: DIABETES MELLITUS
     Dosage: UNK
     Route: 048
     Dates: start: 20121116, end: 20121128
  2. OMEGA-3 MARINE TRIGLYCERIDES [Concomitant]
  3. PLAVIX [Concomitant]
  4. CRESTOR [Concomitant]
  5. ARICEPT [Concomitant]
  6. ENABLEX [Concomitant]
  7. SINEMET [Concomitant]
  8. PREVACID [Concomitant]
  9. FLOMAX (MORNIFLUMATE) [Concomitant]
  10. AMLODIPINE [Concomitant]
  11. DIOVAN [Concomitant]
  12. ASPIRIN [Concomitant]

REACTIONS (2)
  - Insomnia [Recovered/Resolved]
  - Abdominal pain upper [Recovered/Resolved]
